FAERS Safety Report 9963001 (Version 1)
Quarter: 2014Q1

REPORT INFORMATION
  Report Type: Spontaneous
  Country: US (occurrence: US)
  Receive Date: 20140305
  Receipt Date: 20140305
  Transmission Date: 20141002
  Serious: No
  Sender: FDA-Public Use
  Company Number: US-TARO-2013P1002685

PATIENT
  Sex: Female

DRUGS (1)
  1. NYSTATIN CREAM USP 100,000 UNITS/G [Suspect]
     Route: 067

REACTIONS (2)
  - Vulvovaginal burning sensation [Recovered/Resolved]
  - Incorrect route of drug administration [Unknown]
